FAERS Safety Report 23074023 (Version 1)
Quarter: 2023Q4

REPORT INFORMATION
  Report Type: Spontaneous
  Country: US (occurrence: None)
  Receive Date: 20231016
  Receipt Date: 20231016
  Transmission Date: 20240109
  Serious: Yes (Other)
  Sender: FDA-Public Use
  Company Number: None

PATIENT
  Age: 57 Year
  Sex: Female
  Weight: 55.35 kg

DRUGS (6)
  1. ALENDRONATE [Suspect]
     Active Substance: ALENDRONATE SODIUM
     Indication: Osteoporosis
     Dosage: OTHER QUANTITY : 1 TABLET(S);?OTHER FREQUENCY : WEEKLY;?
     Route: 048
  2. ESTRADIOL [Concomitant]
     Active Substance: ESTRADIOL
  3. BENADRYL [Concomitant]
     Active Substance: DIPHENHYDRAMINE HYDROCHLORIDE
  4. ZYRTEC [Concomitant]
     Active Substance: CETIRIZINE HYDROCHLORIDE
  5. Vitamin D/Cal/Mag supplement [Concomitant]
  6. IBUPROFEN [Concomitant]
     Active Substance: IBUPROFEN

REACTIONS (6)
  - Oral discomfort [None]
  - Throat irritation [None]
  - Gingival swelling [None]
  - Swollen tongue [None]
  - Palatal swelling [None]
  - Pharyngeal erythema [None]

NARRATIVE: CASE EVENT DATE: 20230923
